FAERS Safety Report 9494428 (Version 2)
Quarter: 2013Q4

REPORT INFORMATION
  Report Type: Spontaneous
  Country: GB (occurrence: GB)
  Receive Date: 20130903
  Receipt Date: 20131204
  Transmission Date: 20140711
  Serious: Yes (Hospitalization, Other)
  Sender: FDA-Public Use
  Company Number: PHHY2013GB093409

PATIENT
  Age: 88 Year
  Sex: Female

DRUGS (2)
  1. LEVOFLOXACIN [Suspect]
     Indication: LOWER RESPIRATORY TRACT INFECTION
     Dosage: UNK
     Route: 048
     Dates: end: 20120326
  2. FERROUS SULPHATE SANDOZ [Suspect]
     Dosage: UNK
     Route: 048

REACTIONS (5)
  - Pulmonary fibrosis [Unknown]
  - Condition aggravated [Unknown]
  - Lower respiratory tract infection [Unknown]
  - Treatment failure [Recovered/Resolved]
  - Labelled drug-drug interaction medication error [Unknown]
